FAERS Safety Report 4939983-X (Version None)
Quarter: 2006Q1

REPORT INFORMATION
  Report Type: 
  Country: None (occurrence: None)
  Receive Date: 20060310
  Receipt Date: 20060210
  Transmission Date: 20060701
  Serious: Yes (Death, Hospitalization, Other)
  Sender: FDA-Public Use
  Company Number: FR-BRISTOL-MYERS SQUIBB COMPANY-13280367

PATIENT
  Age: 32 Year
  Sex: Male

DRUGS (3)
  1. ZERIT [Suspect]
     Route: 048
     Dates: start: 20000101
  2. LAMIVUDINE [Suspect]
     Dates: start: 20000101
  3. NEVIRAPINE [Suspect]
     Dates: start: 20000101

REACTIONS (2)
  - PORTAL VEIN THROMBOSIS [None]
  - TUBERCULOSIS [None]
